FAERS Safety Report 6857694-0 (Version None)
Quarter: 2010Q3

REPORT INFORMATION
  Report Type: 
  Country: None (occurrence: None)
  Receive Date: 20100719
  Receipt Date: 20080128
  Transmission Date: 20110219
  Serious: No
  Sender: FDA-Public Use
  Company Number: US-PFIZER INC-2008009553

PATIENT
  Sex: Female
  Weight: 95.3 kg

DRUGS (8)
  1. CHANTIX [Suspect]
     Indication: SMOKING CESSATION THERAPY
     Dates: start: 20070101
  2. PROZAC [Concomitant]
  3. LEVOXYL [Concomitant]
  4. TRICOR [Concomitant]
  5. ANAFRANIL [Concomitant]
  6. RISPERDAL [Concomitant]
  7. ATARAX [Concomitant]
  8. ZOCOR [Concomitant]
     Dates: end: 20080101

REACTIONS (3)
  - BLOOD CHOLESTEROL INCREASED [None]
  - CONSTIPATION [None]
  - INSOMNIA [None]
